FAERS Safety Report 6408302-4 (Version None)
Quarter: 2009Q4

REPORT INFORMATION
  Report Type: 
  Country: None (occurrence: None)
  Receive Date: 20091021
  Receipt Date: 20091012
  Transmission Date: 20100525
  Serious: Yes (Hospitalization)
  Sender: FDA-Public Use
  Company Number: US-NOVOPROD-292686

PATIENT
  Age: 70 Year
  Sex: Male
  Weight: 81.633 kg

DRUGS (1)
  1. NOVOLIN N INNOLET [Suspect]
     Indication: INSULIN-REQUIRING TYPE 2 DIABETES MELLITUS
     Dosage: 30 IU, BID
     Route: 058
     Dates: start: 20060101, end: 20090801

REACTIONS (1)
  - STAPHYLOCOCCAL INFECTION [None]
